FAERS Safety Report 13380024 (Version 1)
Quarter: 2017Q1

REPORT INFORMATION
  Report Type: Report from Study
  Country: None (occurrence: BE)
  Receive Date: 20170328
  Receipt Date: 20170328
  Transmission Date: 20170429
  Serious: Yes (Other)
  Sender: FDA-Public Use
  Company Number: BE-ABBVIE-16P-013-1632233-00

PATIENT
  Age: 74 Year
  Sex: Female

DRUGS (6)
  1. DUODOPA [Suspect]
     Active Substance: CARBIDOPA\LEVODOPA
     Dosage: AM: 1.1ML; CD: 2.3 ML/H FOR 16 HRS; ED: 0.6 ML
     Route: 050
     Dates: start: 20161130
  2. DUODOPA [Suspect]
     Active Substance: CARBIDOPA\LEVODOPA
     Indication: PARKINSON^S DISEASE
     Dosage: AM= 1 ML; CD= 2.9 ML/H DURING 16 HRS; ED= 0.5 ML
     Route: 050
     Dates: start: 20120522, end: 20120523
  3. DUODOPA [Suspect]
     Active Substance: CARBIDOPA\LEVODOPA
     Dosage: DOSES CONTINUOUSLY MONITORED AND ADAPTED
     Route: 050
     Dates: start: 20120523, end: 20151029
  4. DUODOPA [Suspect]
     Active Substance: CARBIDOPA\LEVODOPA
     Dosage: AM= 0.9 ML; CD= 2.7 ML/H DURING 16 HRS; ED= 0.6 ML
     Route: 050
     Dates: start: 20151029, end: 20160606
  5. DUODOPA [Suspect]
     Active Substance: CARBIDOPA\LEVODOPA
     Dosage: AM= 1.1 ML; CD= 2.7 ML/H DURING 16 HRS; ED= 0.6 ML
     Route: 050
     Dates: start: 20160606, end: 20160817
  6. DUODOPA [Suspect]
     Active Substance: CARBIDOPA\LEVODOPA
     Dosage: AM: 1.1ML; CD: 2.5ML/H FOR 16 HRS; ED: 0.6ML
     Route: 050
     Dates: start: 20160817, end: 20161130

REACTIONS (9)
  - Drug effect incomplete [Unknown]
  - Confusional state [Unknown]
  - Cognitive disorder [Unknown]
  - Memory impairment [Unknown]
  - Dementia [Not Recovered/Not Resolved]
  - Device occlusion [Recovered/Resolved]
  - Dyskinesia [Not Recovered/Not Resolved]
  - Device issue [Recovered/Resolved]
  - Stoma site erythema [Not Recovered/Not Resolved]

NARRATIVE: CASE EVENT DATE: 201608
